FAERS Safety Report 6086585-0 (Version None)
Quarter: 2009Q1

REPORT INFORMATION
  Report Type: 
  Country: None (occurrence: None)
  Receive Date: 20090223
  Receipt Date: 20090211
  Transmission Date: 20090719
  Serious: Yes (Hospitalization)
  Sender: FDA-Public Use
  Company Number: DE-AMGEN-US331355

PATIENT
  Age: 52 Year
  Sex: Female

DRUGS (3)
  1. ENBREL [Suspect]
     Indication: ANKYLOSING SPONDYLITIS
     Dosage: 50 MG 1 TIME PER 8-9 DAYS
     Route: 058
     Dates: start: 20080401
  2. INFLUENZA VACCINE [Suspect]
  3. IBUPROFEN [Concomitant]
     Dosage: UNKNOWN DOSE ON DEMAND
     Route: 048

REACTIONS (2)
  - VERTIGO [None]
  - VESTIBULAR DISORDER [None]
